FAERS Safety Report 19983251 (Version 1)
Quarter: 2021Q4

REPORT INFORMATION
  Report Type: Spontaneous
  Country: US (occurrence: US)
  Receive Date: 20211021
  Receipt Date: 20211021
  Transmission Date: 20220303
  Serious: Yes (Hospitalization, Disabling)
  Sender: FDA-Public Use
  Company Number: None

PATIENT
  Age: 78 Year
  Sex: Female

DRUGS (6)
  1. ZOLEDRONIC ACID [Suspect]
     Active Substance: ZOLEDRONIC ACID
     Dosage: ?          OTHER FREQUENCY:EVERY 365 DAYS;OTHER ROUTE:IV
     Dates: start: 20210429
  2. LISINOPRIL [Concomitant]
     Active Substance: LISINOPRIL
  3. HYDROCHLOROTHIAZIDE [Concomitant]
     Active Substance: HYDROCHLOROTHIAZIDE
  4. Trelegy Elipta inhaler [Concomitant]
  5. albuterol 90 mcg HFA inhaler [Concomitant]
  6. albuterol 0.083% nebulizer vials [Concomitant]

REACTIONS (1)
  - Dyspnoea [None]
